FAERS Safety Report 15279820 (Version 1)
Quarter: 2018Q3

REPORT INFORMATION
  Report Type: Spontaneous
  Country: JP (occurrence: JP)
  Receive Date: 20180815
  Receipt Date: 20180815
  Transmission Date: 20181010
  Serious: Yes (Other)
  Sender: FDA-Public Use
  Company Number: JP-MYLANLABS-16X-087-1266187-00

PATIENT
  Age: 53 Year
  Sex: Female

DRUGS (8)
  1. CLARITHROMYCIN. [Suspect]
     Active Substance: CLARITHROMYCIN
     Indication: ATYPICAL MYCOBACTERIAL INFECTION
     Dosage: ETHAMBUTOL AND SITAFLOXACIN
     Route: 048
  2. CLARITHROMYCIN. [Suspect]
     Active Substance: CLARITHROMYCIN
     Indication: MYCOBACTERIUM AVIUM COMPLEX INFECTION
     Dosage: WITH ETHAMBUTOL AND RIFAMPICIN
     Route: 065
  3. RIFAMPICIN [Suspect]
     Active Substance: RIFAMPIN
     Indication: MYCOBACTERIUM AVIUM COMPLEX INFECTION
     Dosage: WITH ETHAMBUTOL AND CLARITHROMYCIN
     Route: 048
  4. SITAFLOXACIN [Suspect]
     Active Substance: SITAFLOXACIN
     Indication: MYCOBACTERIUM AVIUM COMPLEX INFECTION
     Route: 048
  5. RIFAMPICIN [Suspect]
     Active Substance: RIFAMPIN
     Indication: ATYPICAL MYCOBACTERIAL INFECTION
  6. ETHAMBUTOL [Suspect]
     Active Substance: ETHAMBUTOL HYDROCHLORIDE
     Indication: MYCOBACTERIUM AVIUM COMPLEX INFECTION
     Dosage: WITH CLARITHROMYCIN
     Route: 048
  7. ETHAMBUTOL [Suspect]
     Active Substance: ETHAMBUTOL HYDROCHLORIDE
     Indication: ATYPICAL MYCOBACTERIAL INFECTION
     Dosage: RESTARTED WITH CLARITHROMYCIN AND SITAFLOXACIN??
     Route: 048
  8. SITAFLOXACIN [Suspect]
     Active Substance: SITAFLOXACIN
     Indication: ATYPICAL MYCOBACTERIAL INFECTION

REACTIONS (2)
  - Pneumatosis intestinalis [Recovering/Resolving]
  - Transaminases increased [Unknown]
